FAERS Safety Report 7447946-8 (Version None)
Quarter: 2011Q2

REPORT INFORMATION
  Report Type: 
  Country: None (occurrence: None)
  Receive Date: 20110429
  Receipt Date: 20110415
  Transmission Date: 20111010
  Serious: Yes (Other)
  Sender: FDA-Public Use
  Company Number: IT-WATSON-2011-05775

PATIENT
  Age: 29 Year
  Sex: Female

DRUGS (3)
  1. SIROLIMUS [Suspect]
     Indication: IMMUNOSUPPRESSION
  2. METHYLPREDNISOLONE [Concomitant]
  3. TACROLIMUS [Suspect]
     Indication: IMMUNOSUPPRESSION
     Dosage: 2 MG, BID
     Dates: start: 20040101

REACTIONS (1)
  - MOYAMOYA DISEASE [None]
